FAERS Safety Report 8924632 (Version 2)
Quarter: 2013Q2

REPORT INFORMATION
  Report Type: Spontaneous
  Country: US (occurrence: US)
  Receive Date: 20121126
  Receipt Date: 20130525
  Transmission Date: 20140414
  Serious: No
  Sender: FDA-Public Use
  Company Number: US-BRISTOL-MYERS SQUIBB COMPANY-16962946

PATIENT
  Age: 66 Year
  Sex: Male
  Weight: 104.31 kg

DRUGS (14)
  1. KOMBIGLYZE XR [Suspect]
     Indication: TYPE 2 DIABETES MELLITUS
     Dosage: 1 DF:2.5MG/1000MG
     Dates: start: 201205
  2. EXENATIDE 2MG VIAL + SYRINGE [Suspect]
     Indication: TYPE 2 DIABETES MELLITUS
     Route: 058
     Dates: start: 20120818
  3. COZAAR [Concomitant]
     Indication: HYPERTENSION
  4. FLOMAX [Concomitant]
     Indication: PROSTATOMEGALY
  5. LAMICTAL [Concomitant]
     Indication: DEPRESSION
  6. LAMICTAL [Concomitant]
     Indication: ANXIETY
  7. WELLBUTRIN [Concomitant]
     Indication: EX-TOBACCO USER
  8. WELLBUTRIN [Concomitant]
     Indication: DEPRESSION
  9. NEXIUM [Concomitant]
     Indication: GASTROOESOPHAGEAL REFLUX DISEASE
     Route: 048
  10. CRESTOR [Concomitant]
  11. XANAX [Concomitant]
     Indication: DEPRESSION
  12. CYMBALTA [Concomitant]
     Indication: DEPRESSION
  13. LAXATIVES [Concomitant]
     Indication: CONSTIPATION
     Dates: start: 201208
  14. ANTACIDS [Concomitant]
     Indication: GASTROOESOPHAGEAL REFLUX DISEASE
     Dates: start: 201208

REACTIONS (2)
  - Gastrooesophageal reflux disease [Unknown]
  - Constipation [Unknown]
